FAERS Safety Report 5155413-X (Version None)
Quarter: 2006Q4

REPORT INFORMATION
  Report Type: 
  Country: None (occurrence: None)
  Receive Date: 20061114
  Receipt Date: 20060925
  Transmission Date: 20070319
  Serious: Yes (Other)
  Sender: FDA-Public Use
  Company Number: 2006118865

PATIENT
  Age: 65 Year
  Sex: Female
  Weight: 62.5964 kg

DRUGS (1)
  1. CHANTIX [Suspect]
     Indication: SMOKING CESSATION THERAPY
     Dosage: 0.5 MG
     Dates: start: 20060901

REACTIONS (4)
  - CONSTIPATION [None]
  - DEPRESSION [None]
  - INITIAL INSOMNIA [None]
  - MEMORY IMPAIRMENT [None]
